FAERS Safety Report 9937675 (Version 1)
Quarter: 2014Q1

REPORT INFORMATION
  Report Type: Spontaneous
  Country: US (occurrence: US)
  Receive Date: 20140303
  Receipt Date: 20140303
  Transmission Date: 20141002
  Serious: No
  Sender: FDA-Public Use
  Company Number: US-BIOGENIDEC-2014BI015572

PATIENT
  Age: 40 Year
  Sex: Female

DRUGS (3)
  1. TECFIDERA [Suspect]
     Indication: MULTIPLE SCLEROSIS
     Dates: start: 20130520, end: 20130530
  2. TECFIDERA [Suspect]
     Indication: MULTIPLE SCLEROSIS
     Dates: start: 20130531, end: 20130607
  3. TECFIDERA [Suspect]
     Indication: MULTIPLE SCLEROSIS
     Dates: start: 20130608, end: 20130701

REACTIONS (9)
  - Thyroid disorder [Not Recovered/Not Resolved]
  - Intentional underdose [Recovered/Resolved]
  - Feeling abnormal [Recovered/Resolved]
  - Amnesia [Not Recovered/Not Resolved]
  - Constipation [Recovered/Resolved]
  - Multiple sclerosis [Not Recovered/Not Resolved]
  - Generalised erythema [Recovered/Resolved]
  - Flushing [Recovered/Resolved]
  - Feeling of body temperature change [Not Recovered/Not Resolved]
